FAERS Safety Report 19512568 (Version 3)
Quarter: 2021Q3

REPORT INFORMATION
  Report Type: Spontaneous
  Country: NL (occurrence: NL)
  Receive Date: 20210709
  Receipt Date: 20210729
  Transmission Date: 20211014
  Serious: Yes (Hospitalization, Other)
  Sender: FDA-Public Use
  Company Number: NL-PFIZER INC-2021771332

PATIENT
  Age: 3 Month
  Sex: Female

DRUGS (6)
  1. REVATIO [Suspect]
     Active Substance: SILDENAFIL CITRATE
     Dosage: 10 ML = 100 MG = 20 MG/KG)
  2. AZITHROMYCIN ANHYDROUS. [Concomitant]
     Active Substance: AZITHROMYCIN ANHYDROUS
     Indication: PROPHYLAXIS
     Dosage: 52 MG (3 TIMES A WEEK)
  3. REVATIO [Suspect]
     Active Substance: SILDENAFIL CITRATE
     Indication: PULMONARY ARTERIAL HYPERTENSION
     Dosage: 3.5 MG, 3X/DAY (0.35ML; 2 MG/KG/DAY; 1ML SUSPENSION=10MG)
  4. HYDROCHLOROTHIAZIDE. [Concomitant]
     Active Substance: HYDROCHLOROTHIAZIDE
     Indication: PULMONARY ARTERIAL HYPERTENSION
     Dosage: 5 MG, DAILY
  5. RANITIDINE. [Concomitant]
     Active Substance: RANITIDINE
     Dosage: 35 MG, 2X/DAY
  6. SPIRONOLACTONE. [Concomitant]
     Active Substance: SPIRONOLACTONE
     Indication: PULMONARY ARTERIAL HYPERTENSION
     Dosage: 5 MG, DAILY

REACTIONS (5)
  - Off label use [Unknown]
  - Restlessness [Recovered/Resolved]
  - Rhinorrhoea [Recovered/Resolved]
  - Accidental overdose [Recovered/Resolved]
  - Flushing [Recovered/Resolved]
